FAERS Safety Report 7936530-5 (Version None)
Quarter: 2011Q4

REPORT INFORMATION
  Report Type: 
  Country: None (occurrence: None)
  Receive Date: 20111123
  Receipt Date: 20110901
  Transmission Date: 20120403
  Serious: No
  Sender: FDA-Public Use
  Company Number: US-BAYER-2011-087737

PATIENT

DRUGS (2)
  1. TYLENOL W/ CODEINE [Concomitant]
     Indication: HEADACHE
     Dosage: 2 DF, ONCE
     Dates: start: 20110831
  2. ALEVE (CAPLET) [Suspect]
     Indication: HEADACHE
     Dosage: 3 DF, ONCE
     Dates: start: 20110831

REACTIONS (1)
  - NO ADVERSE EVENT [None]
